FAERS Safety Report 5752107-4 (Version None)
Quarter: 2008Q2

REPORT INFORMATION
  Report Type: 
  Country: None (occurrence: None)
  Receive Date: 20080529
  Receipt Date: 20080523
  Transmission Date: 20081010
  Serious: Yes (Hospitalization)
  Sender: FDA-Public Use
  Company Number: IT-GENENTECH-261617

PATIENT
  Sex: Female

DRUGS (4)
  1. RAPTIVA [Suspect]
     Indication: PSORIASIS
     Dosage: UNK, 1/WEEK
     Dates: start: 20070701, end: 20080430
  2. DULOXETINE HYDROCHLORIDE [Concomitant]
     Indication: DRUG USE FOR UNKNOWN INDICATION
  3. CLONAZEPAM [Concomitant]
     Indication: DRUG USE FOR UNKNOWN INDICATION
  4. LEVOMEPROMAZINE MALEATE [Concomitant]
     Indication: DRUG USE FOR UNKNOWN INDICATION

REACTIONS (2)
  - ARTHRALGIA [None]
  - DACTYLITIS [None]
